FAERS Safety Report 15647656 (Version 1)
Quarter: 2018Q4

REPORT INFORMATION
  Report Type: Spontaneous
  Country: JP (occurrence: JP)
  Receive Date: 20181122
  Receipt Date: 20181122
  Transmission Date: 20190205
  Serious: Yes (Hospitalization, Other)
  Sender: FDA-Public Use
  Company Number: JP-GLAXOSMITHKLINE-JP2018JPN201046

PATIENT
  Age: 8 Decade
  Sex: Male

DRUGS (3)
  1. SAMTIREL [Suspect]
     Active Substance: ATOVAQUONE
     Indication: PNEUMOCYSTIS JIROVECII PNEUMONIA
     Dosage: UNK
     Route: 048
  2. AMBISOME [Concomitant]
     Active Substance: AMPHOTERICIN B
     Dosage: UNK
  3. ANCOTIL [Concomitant]
     Active Substance: FLUCYTOSINE
     Dosage: UNK

REACTIONS (5)
  - Blood potassium decreased [Unknown]
  - Leukopenia [Recovering/Resolving]
  - Neutrophil count decreased [Recovering/Resolving]
  - Diarrhoea [Unknown]
  - Pyrexia [Unknown]
